FAERS Safety Report 9793055 (Version 7)
Quarter: 2016Q4

REPORT INFORMATION
  Report Type: Spontaneous
  Country: US (occurrence: US)
  Receive Date: 20140102
  Receipt Date: 20161101
  Transmission Date: 20170207
  Serious: Yes (Hospitalization, Other)
  Sender: FDA-Public Use
  Company Number: US-009507513-1312USA011699

PATIENT
  Sex: Female
  Weight: 61.22 kg

DRUGS (4)
  1. FOSAMAX [Suspect]
     Active Substance: ALENDRONATE SODIUM
     Indication: OSTEOPENIA
     Dosage: 70 MG, QW
     Route: 048
     Dates: start: 20030503, end: 20130202
  2. ALENDRONATE SODIUM. [Suspect]
     Active Substance: ALENDRONATE SODIUM
     Indication: OSTEOPENIA
  3. ALENDRONATE SODIUM. [Suspect]
     Active Substance: ALENDRONATE SODIUM
     Indication: OSTEOPOROSIS
     Dosage: 70 MG, QW
     Route: 048
     Dates: start: 2003, end: 201301
  4. FOSAMAX [Suspect]
     Active Substance: ALENDRONATE SODIUM
     Indication: OSTEOPOROSIS
     Dosage: 10 MG, UNKNOWN
     Route: 048

REACTIONS (26)
  - Deep vein thrombosis [Unknown]
  - Dizziness [Unknown]
  - Arthralgia [Unknown]
  - Anaemia [Not Recovered/Not Resolved]
  - Myalgia [Recovered/Resolved]
  - Intramedullary rod insertion [Unknown]
  - Hypertriglyceridaemia [Unknown]
  - Rotator cuff syndrome [Unknown]
  - Asthma [Unknown]
  - Bursitis [Unknown]
  - Osteoarthritis [Unknown]
  - Scoliosis [Unknown]
  - Hiatus hernia [Unknown]
  - Tonsillectomy [Unknown]
  - Hypercholesterolaemia [Unknown]
  - Umbilical hernia [Unknown]
  - Atypical femur fracture [Unknown]
  - Low turnover osteopathy [Unknown]
  - Adverse event [Unknown]
  - Urinary retention [Unknown]
  - Conjunctival haemorrhage [Unknown]
  - Foot fracture [Recovering/Resolving]
  - Urinary tract infection [Unknown]
  - Haemorrhagic anaemia [Unknown]
  - Abdominal pain lower [Recovered/Resolved]
  - Gastrooesophageal reflux disease [Unknown]

NARRATIVE: CASE EVENT DATE: 2003
